FAERS Safety Report 23857123 (Version 1)
Quarter: 2024Q2

REPORT INFORMATION
  Report Type: Spontaneous
  Country: IT (occurrence: IT)
  Receive Date: 20240515
  Receipt Date: 20240515
  Transmission Date: 20240715
  Serious: Yes (Other)
  Sender: FDA-Public Use
  Company Number: IT-Hisun Pharmaceuticals-2156988

PATIENT
  Age: 71 Year
  Sex: Male

DRUGS (1)
  1. CLADRIBINE [Suspect]
     Active Substance: CLADRIBINE
     Indication: Hairy cell leukaemia

REACTIONS (2)
  - Prostate cancer [Unknown]
  - Bladder cancer [Unknown]
